FAERS Safety Report 19355255 (Version 1)
Quarter: 2021Q2

REPORT INFORMATION
  Report Type: Spontaneous
  Country: US (occurrence: US)
  Receive Date: 20210601
  Receipt Date: 20210601
  Transmission Date: 20210717
  Serious: No
  Sender: FDA-Public Use
  Company Number: US-STRIDES ARCOLAB LIMITED-2021SP002239

PATIENT
  Age: 12 Year
  Sex: Male

DRUGS (8)
  1. AMPICILLIN/SULBACTAM ACTAVIS [Concomitant]
     Active Substance: AMPICILLIN SODIUM\SULBACTAM SODIUM
     Indication: SEVERE ACUTE RESPIRATORY SYNDROME
  2. CLINDAMYCIN. [Concomitant]
     Active Substance: CLINDAMYCIN
     Indication: SEVERE ACUTE RESPIRATORY SYNDROME
  3. VANCOMYCIN [Suspect]
     Active Substance: VANCOMYCIN
     Indication: SEVERE ACUTE RESPIRATORY SYNDROME
  4. ENOXAPARIN [Concomitant]
     Active Substance: ENOXAPARIN
     Indication: CORONAVIRUS INFECTION
     Dosage: UNK
     Route: 065
  5. VANCOMYCIN [Suspect]
     Active Substance: VANCOMYCIN
     Indication: CORONAVIRUS INFECTION
     Dosage: UNK
     Route: 065
  6. ENOXAPARIN [Concomitant]
     Active Substance: ENOXAPARIN
     Indication: SEVERE ACUTE RESPIRATORY SYNDROME
  7. AMPICILLIN/SULBACTAM ACTAVIS [Concomitant]
     Active Substance: AMPICILLIN SODIUM\SULBACTAM SODIUM
     Indication: CORONAVIRUS INFECTION
     Dosage: UNK
     Route: 065
  8. CLINDAMYCIN. [Concomitant]
     Active Substance: CLINDAMYCIN
     Indication: CORONAVIRUS INFECTION
     Dosage: UNK
     Route: 065

REACTIONS (1)
  - Off label use [Unknown]
